FAERS Safety Report 7205540-8 (Version None)
Quarter: 2010Q4

REPORT INFORMATION
  Report Type: 
  Country: None (occurrence: None)
  Receive Date: 20101231
  Receipt Date: 20101220
  Transmission Date: 20110411
  Serious: Yes (Other)
  Sender: FDA-Public Use
  Company Number: PHHY2010US86505

PATIENT
  Sex: Female

DRUGS (12)
  1. EXELON [Suspect]
     Dosage: 4.6 MG, UNK
     Route: 062
  2. EXELON [Suspect]
     Dosage: 9.5 MG, UNK
     Route: 062
  3. COUMADIN [Concomitant]
  4. WARFARIN [Concomitant]
  5. ASPIRIN [Concomitant]
  6. ATENOLOL [Concomitant]
  7. CRESTOR [Concomitant]
  8. VITAMIN D [Concomitant]
  9. VITAMIN B-12 [Concomitant]
  10. SERTRALINE HYDROCHLORIDE [Concomitant]
  11. TEMAZEPAM [Concomitant]
  12. ARICEPT [Concomitant]

REACTIONS (4)
  - AMNESIA [None]
  - BALANCE DISORDER [None]
  - CEREBROVASCULAR DISORDER [None]
  - MOVEMENT DISORDER [None]
